FAERS Safety Report 12197822 (Version 1)
Quarter: 2016Q1

REPORT INFORMATION
  Report Type: Spontaneous
  Country: US (occurrence: US)
  Receive Date: 20160322
  Receipt Date: 20160322
  Transmission Date: 20160526
  Serious: No
  Sender: FDA-Public Use
  Company Number: US-009507513-1603USA006126

PATIENT
  Age: 52 Year
  Sex: Female

DRUGS (10)
  1. BELSOMRA [Suspect]
     Active Substance: SUVOREXANT
     Dosage: 20 MG, QD (ONCE AT BEDTIME)
     Dates: start: 201602, end: 20160220
  2. BELSOMRA [Suspect]
     Active Substance: SUVOREXANT
     Indication: INSOMNIA
     Dosage: 5 MG, QD (ONCE AT BEDTIME)
     Route: 048
     Dates: start: 201601
  3. ESTRADIOL. [Concomitant]
     Active Substance: ESTRADIOL
  4. CITALOPRAM [Concomitant]
     Active Substance: CITALOPRAM HYDROBROMIDE
  5. CLONAZEPAM. [Concomitant]
     Active Substance: CLONAZEPAM
  6. BUPROPION HYDROCHLORIDE. [Concomitant]
     Active Substance: BUPROPION HYDROCHLORIDE
  7. ROPINIROLE HYDROCHLORIDE. [Concomitant]
     Active Substance: ROPINIROLE HYDROCHLORIDE
     Dosage: 0.5 MG
  8. FLUTICASONE [Concomitant]
     Active Substance: FLUTICASONE\FLUTICASONE PROPIONATE
  9. LORAZEPAN (LORAZEPAM) [Concomitant]
  10. BELSOMRA [Suspect]
     Active Substance: SUVOREXANT
     Dosage: 10 MG, QD (ONCE AT BEDTIME)
     Dates: start: 201601

REACTIONS (2)
  - Drug ineffective [Recovering/Resolving]
  - Drug ineffective [Recovering/Resolving]

NARRATIVE: CASE EVENT DATE: 201601
